FAERS Safety Report 7555110-7 (Version None)
Quarter: 2011Q2

REPORT INFORMATION
  Report Type: 
  Country: None (occurrence: None)
  Receive Date: 20110617
  Receipt Date: 20110606
  Transmission Date: 20111010
  Serious: No
  Sender: FDA-Public Use
  Company Number: B0725367A

PATIENT
  Age: 36 Year
  Sex: Female

DRUGS (1)
  1. RELENZA [Suspect]
     Indication: INFLUENZA
     Route: 055

REACTIONS (1)
  - DRUG EXPOSURE DURING PREGNANCY [None]
